FAERS Safety Report 7597584-1 (Version None)
Quarter: 2011Q3

REPORT INFORMATION
  Report Type: 
  Country: None (occurrence: None)
  Receive Date: 20110708
  Receipt Date: 20110628
  Transmission Date: 20111222
  Serious: Yes (Hospitalization, Other)
  Sender: FDA-Public Use
  Company Number: US-JNJFOC-20110612878

PATIENT
  Sex: Female
  Weight: 80.74 kg

DRUGS (9)
  1. REMICADE [Suspect]
     Indication: COLITIS ULCERATIVE
     Route: 042
     Dates: start: 20080601
  2. CELEXA [Concomitant]
     Indication: PAIN
     Dosage: EVERY OTHER DAY
     Dates: start: 20090101
  3. REMICADE [Suspect]
     Indication: AUTOIMMUNE ARTHRITIS
     Route: 042
     Dates: start: 20080601
  4. METHOTREXATE [Concomitant]
     Indication: ARTHRITIS
     Dates: start: 20010101
  5. DAILY VITAMINS [Concomitant]
     Indication: VITAMIN SUPPLEMENTATION
     Route: 048
     Dates: start: 20010101
  6. VICODIN [Concomitant]
     Indication: PAIN
     Route: 048
  7. FOLIC ACID [Concomitant]
     Indication: VITAMIN SUPPLEMENTATION
     Dates: start: 20060101
  8. VITAMIN B-12 [Concomitant]
     Indication: VITAMIN SUPPLEMENTATION
     Dates: start: 20010101
  9. PEPCID [Concomitant]
     Indication: PROPHYLAXIS
     Route: 048
     Dates: start: 20100101

REACTIONS (7)
  - DIARRHOEA [None]
  - ELECTROLYTE IMBALANCE [None]
  - SEPSIS [None]
  - GALLBLADDER OPERATION [None]
  - ENDOCRINE DISORDER [None]
  - VOMITING [None]
  - ABNORMAL LOSS OF WEIGHT [None]
